FAERS Safety Report 16770581 (Version 4)
Quarter: 2019Q4

REPORT INFORMATION
  Report Type: Spontaneous
  Country: US (occurrence: US)
  Receive Date: 20190904
  Receipt Date: 20191002
  Transmission Date: 20200122
  Serious: Yes (Other)
  Sender: FDA-Public Use
  Company Number: US-SHIRE-US201928598

PATIENT
  Sex: Female

DRUGS (2)
  1. FIRAZYR [Suspect]
     Active Substance: ICATIBANT ACETATE
     Indication: PRODUCT USED FOR UNKNOWN INDICATION
     Dosage: 3ML/30MG, AS REQ^D
     Route: 058
     Dates: start: 20130619
  2. TAKHZYRO [Suspect]
     Active Substance: LANADELUMAB-FLYO
     Indication: PRODUCT USED FOR UNKNOWN INDICATION
     Dosage: 300 MILLIGRAM, 1X/2WKS
     Route: 058
     Dates: start: 20180928

REACTIONS (3)
  - Upper respiratory tract infection [Unknown]
  - Lower respiratory tract infection [Recovering/Resolving]
  - Alopecia [Unknown]
